FAERS Safety Report 4494570-5 (Version None)
Quarter: 2004Q4

REPORT INFORMATION
  Report Type: 
  Country: None (occurrence: None)
  Receive Date: 20041105
  Receipt Date: 20041027
  Transmission Date: 20050328
  Serious: Yes (Hospitalization)
  Sender: FDA-Public Use
  Company Number: US-MERCK-0410USA04123

PATIENT
  Age: 49 Year
  Sex: Female

DRUGS (12)
  1. VIOXX [Suspect]
     Indication: PAIN MANAGEMENT
     Route: 048
     Dates: start: 20031201
  2. BACLOFEN [Concomitant]
     Route: 065
  3. METHOCARBAMOL [Concomitant]
     Route: 065
  4. AMITRIPTYLIN [Concomitant]
     Route: 065
  5. FUROSEMIDE [Concomitant]
     Route: 065
  6. FOLIC ACID [Concomitant]
     Route: 065
  7. OXYCONTIN [Concomitant]
     Route: 065
  8. DICYCLOMINE HYDROCHLORIDE [Concomitant]
     Route: 065
  9. ZOVIRAX [Concomitant]
     Route: 065
  10. CRESTOR [Concomitant]
     Route: 065
  11. [THERAPY UNSPECIFIED] [Concomitant]
     Route: 065
  12. ADVAIR [Concomitant]
     Route: 065

REACTIONS (1)
  - CORONARY ARTERY OCCLUSION [None]
